FAERS Safety Report 9187796 (Version 2)
Quarter: 2013Q2

REPORT INFORMATION
  Report Type: Spontaneous
  Country: US (occurrence: US)
  Receive Date: 20130325
  Receipt Date: 20130408
  Transmission Date: 20140414
  Serious: Yes (Hospitalization)
  Sender: FDA-Public Use
  Company Number: US-ALEXION PHARMACEUTICALS INC.-A201300295

PATIENT
  Age: 29 Year
  Sex: Female
  Weight: 109 kg

DRUGS (7)
  1. SOLIRIS 300MG [Suspect]
     Indication: HAEMOLYTIC URAEMIC SYNDROME
     Dosage: 900 MG, QW
     Route: 042
     Dates: start: 20120316, end: 20130125
  2. SOLIRIS 300MG [Suspect]
     Dosage: 1200 MG, Q2W
     Route: 042
     Dates: start: 20130125
  3. SOLIRIS 300MG [Suspect]
     Dosage: 1200 MG, Q2W
     Route: 042
  4. VALIUM [Concomitant]
     Dosage: 2 MG, TID
  5. ANTIDEPRESSANTS [Concomitant]
     Indication: DEPRESSION
     Dosage: UNK
  6. ANTIDEPRESSANTS [Concomitant]
     Indication: ANXIETY
  7. TRAMADOL [Concomitant]
     Indication: PAIN

REACTIONS (2)
  - Nausea [Unknown]
  - Vomiting [Unknown]
